FAERS Safety Report 8234955-4 (Version None)
Quarter: 2012Q1

REPORT INFORMATION
  Report Type: 
  Country: None (occurrence: None)
  Receive Date: 20120322
  Receipt Date: 20120315
  Transmission Date: 20120608
  Serious: Yes (Hospitalization, Other)
  Sender: FDA-Public Use
  Company Number: 2009SP023137

PATIENT
  Age: 24 Year
  Sex: Female
  Weight: 59 kg

DRUGS (3)
  1. TYLENOL [Concomitant]
  2. NUVARING [Suspect]
     Indication: CONTRACEPTION
     Dosage: 1 DF; QM; VAG
     Route: 067
     Dates: start: 20060423, end: 20060530
  3. LEVOTHYROXINE SODIUM [Concomitant]

REACTIONS (12)
  - FALL [None]
  - MIGRAINE [None]
  - HEART RATE IRREGULAR [None]
  - CEREBRAL INFARCTION [None]
  - CONTUSION [None]
  - ACCIDENT AT WORK [None]
  - UPPER RESPIRATORY TRACT INFECTION [None]
  - ATRIAL SEPTAL DEFECT [None]
  - VENTRICULAR EXTRASYSTOLES [None]
  - PINEAL GLAND CYST [None]
  - SINUSITIS [None]
  - SINUS BRADYCARDIA [None]
